FAERS Safety Report 9526365 (Version 2)
Quarter: 2013Q4

REPORT INFORMATION
  Report Type: Spontaneous
  Country: FR (occurrence: FR)
  Receive Date: 20130916
  Receipt Date: 20131018
  Transmission Date: 20140711
  Serious: Yes (Hospitalization)
  Sender: FDA-Public Use
  Company Number: ALCN2013FR004567

PATIENT
  Age: 19 Year
  Sex: Female

DRUGS (2)
  1. MAXIDROL [Suspect]
     Indication: CONJUNCTIVITIS
     Dosage: UNK
     Route: 047
     Dates: start: 20130718, end: 20130720
  2. TOBREX [Suspect]
     Indication: CONJUNCTIVITIS
     Dosage: UNK
     Route: 047
     Dates: start: 20130718, end: 20130720

REACTIONS (1)
  - Stevens-Johnson syndrome [Recovered/Resolved with Sequelae]
